FAERS Safety Report 20264449 (Version 1)
Quarter: 2021Q4

REPORT INFORMATION
  Report Type: Spontaneous
  Country: US (occurrence: None)
  Receive Date: 20211230
  Receipt Date: 20211230
  Transmission Date: 20220303
  Serious: Yes (Other)
  Sender: FDA-Public Use
  Company Number: None

PATIENT
  Age: 72 Year
  Sex: Female

DRUGS (1)
  1. IBRANCE [Suspect]
     Active Substance: PALBOCICLIB
     Indication: Breast cancer female
     Dosage: 100MG DAILY ORAL?
     Route: 048
     Dates: start: 20160401

REACTIONS (2)
  - Swelling face [None]
  - Salivary gland disorder [None]

NARRATIVE: CASE EVENT DATE: 20211223
